FAERS Safety Report 5488165-4 (Version None)
Quarter: 2007Q4

REPORT INFORMATION
  Report Type: 
  Country: None (occurrence: None)
  Receive Date: 20071005
  Receipt Date: 20070904
  Transmission Date: 20080405
  Serious: No
  Sender: FDA-Public Use
  Company Number: PHEH2007US11388

PATIENT
  Age: 73 Year
  Sex: Male

DRUGS (3)
  1. TEKTURNA [Suspect]
     Dosage: 150 MG
  2. NORVASK (AMLODIPINE) [Concomitant]
  3. HYDROCHLOROTHIAZIDE [Concomitant]

REACTIONS (8)
  - CHILLS [None]
  - DIARRHOEA [None]
  - FATIGUE [None]
  - LETHARGY [None]
  - PAIN [None]
  - PARAESTHESIA [None]
  - SKIN IRRITATION [None]
  - TREMOR [None]
